FAERS Safety Report 7280520-5 (Version None)
Quarter: 2011Q1

REPORT INFORMATION
  Report Type: 
  Country: None (occurrence: None)
  Receive Date: 20110131
  Receipt Date: 20101231
  Transmission Date: 20110831
  Serious: Yes (Death)
  Sender: FDA-Public Use
  Company Number: AUR-APL-2011-00122

PATIENT
  Age: 77 Year
  Sex: Female

DRUGS (8)
  1. LEVOTHYROXINE SODIUM [Suspect]
  2. CHLORDIAZEPOXIDE [Suspect]
  3. HYDROCHLOROTHIAZIDE [Suspect]
  4. DILTIAZEM [Suspect]
     Dosage: ORAL
     Route: 048
  5. SIMVASTATIN [Suspect]
     Dosage: ORAL
     Route: 048
  6. VENLAFAXINE [Suspect]
     Dosage: ORAL
     Route: 048
  7. LISINOPRIL [Suspect]
  8. DOXAZOSIN MODIFIED-RELEASE TABLET [Suspect]
     Dosage: ORAL
     Route: 048

REACTIONS (5)
  - COMPLETED SUICIDE [None]
  - RESPIRATORY ARREST [None]
  - TOXICITY TO VARIOUS AGENTS [None]
  - INTENTIONAL DRUG MISUSE [None]
  - CARDIAC ARREST [None]
